FAERS Safety Report 7707054-5 (Version None)
Quarter: 2011Q3

REPORT INFORMATION
  Report Type: 
  Country: None (occurrence: None)
  Receive Date: 20110819
  Receipt Date: 20110803
  Transmission Date: 20111222
  Serious: Yes (Life-Threatening, Hospitalization)
  Sender: FDA-Public Use
  Company Number: FABR-11437

PATIENT
  Age: 63 Year
  Sex: Male
  Weight: 48 kg

DRUGS (5)
  1. ASPIRIN DIALUMINATE [Concomitant]
  2. APRINDINE HYDROCHLORIDE (APRINDINE HYDROCHLORIDE) [Concomitant]
  3. PRECIPITATED CALCIUM CARBONATE [Concomitant]
  4. FABRAZYME [Suspect]
     Indication: FABRY'S DISEASE
     Dosage: 50 MG, Q2W, INTRAVENOUS
     Route: 042
     Dates: start: 20040428, end: 20060302
  5. ALFACALCIDOL (ALFACALCIDOL) [Concomitant]

REACTIONS (4)
  - FALL [None]
  - FEMUR FRACTURE [None]
  - VENTRICULAR TACHYCARDIA [None]
  - CARDIO-RESPIRATORY ARREST [None]
